FAERS Safety Report 18596307 (Version 9)
Quarter: 2021Q1

REPORT INFORMATION
  Report Type: Report from Study
  Country: DE (occurrence: DE)
  Receive Date: 20201209
  Receipt Date: 20210224
  Transmission Date: 20210419
  Serious: Yes (Hospitalization, Other)
  Sender: FDA-Public Use
  Company Number: DE-BRISTOL-MYERS SQUIBB COMPANY-BMS-2020-102409

PATIENT
  Age: 76 Year
  Sex: Male

DRUGS (6)
  1. IPILIMUMAB [Suspect]
     Active Substance: IPILIMUMAB
     Indication: MALIGNANT MELANOMA
     Dosage: 207 MILLIGRAM, Q3WK
     Route: 042
     Dates: start: 20190624, end: 20190805
  2. NIVOLUMAB [Suspect]
     Active Substance: NIVOLUMAB
     Dosage: 67 MILLIGRAM, Q3WK
     Route: 042
     Dates: start: 20200924, end: 20201104
  3. NIVOLUMAB [Suspect]
     Active Substance: NIVOLUMAB
     Indication: MALIGNANT MELANOMA
     Dosage: 69 MILLIGRAM, Q3WK
     Route: 042
     Dates: start: 20190624, end: 20190805
  4. NIVOLUMAB [Suspect]
     Active Substance: NIVOLUMAB
     Dosage: 480 MILLIGRAM
     Route: 065
     Dates: start: 20191008, end: 20200804
  5. IPILIMUMAB [Suspect]
     Active Substance: IPILIMUMAB
     Indication: MALIGNANT MELANOMA
     Dosage: 201 MILLIGRAM, Q3WK
     Route: 042
     Dates: start: 20200924, end: 20201104
  6. NIVOLUMAB [Suspect]
     Active Substance: NIVOLUMAB
     Indication: MALIGNANT MELANOMA
     Dosage: 67 MILLIGRAM, Q3WK
     Route: 042
     Dates: start: 20200924, end: 20201104

REACTIONS (10)
  - Acute kidney injury [Unknown]
  - Malignant neoplasm progression [Unknown]
  - Diarrhoea [Recovered/Resolved]
  - Urinary tract infection [Unknown]
  - Gastrointestinal pain [Unknown]
  - Autoimmune colitis [Unknown]
  - Muscular weakness [Unknown]
  - Kidney infection [Recovering/Resolving]
  - Syncope [Unknown]
  - Vertigo [Unknown]

NARRATIVE: CASE EVENT DATE: 20201013
